FAERS Safety Report 23825978 (Version 1)
Quarter: 2024Q2

REPORT INFORMATION
  Report Type: Spontaneous
  Country: US (occurrence: None)
  Receive Date: 20240506
  Receipt Date: 20240506
  Transmission Date: 20240716
  Serious: Yes (Death, Hospitalization)
  Sender: FDA-Public Use
  Company Number: None

PATIENT
  Age: 62 Year
  Sex: Male

DRUGS (1)
  1. LENALIDOMIDE [Suspect]
     Active Substance: LENALIDOMIDE
     Indication: Central nervous system lymphoma
     Dosage: FREQUENCY : DAILY;?
     Route: 048
     Dates: start: 20240126, end: 20240411

REACTIONS (2)
  - Failure to thrive [None]
  - Hospice care [None]

NARRATIVE: CASE EVENT DATE: 20240408
